FAERS Safety Report 7268329-X (Version None)
Quarter: 2011Q1

REPORT INFORMATION
  Report Type: 
  Country: None (occurrence: None)
  Receive Date: 20110201
  Receipt Date: 20110121
  Transmission Date: 20110831
  Serious: Yes (Other)
  Sender: FDA-Public Use
  Company Number: US-BAYER-2011-007878

PATIENT
  Age: 87 Year
  Sex: Female

DRUGS (2)
  1. BONIVA [Concomitant]
     Dosage: UNK
  2. ALEVE (CAPLET) [Suspect]
     Dosage: DAILY DOSE 660 MG
     Route: 048
     Dates: start: 20110111

REACTIONS (4)
  - MEMORY IMPAIRMENT [None]
  - WEIGHT DECREASED [None]
  - DECREASED APPETITE [None]
  - DEPRESSION [None]
